FAERS Safety Report 5370072-9 (Version None)
Quarter: 2007Q2

REPORT INFORMATION
  Report Type: 
  Country: None (occurrence: None)
  Receive Date: 20070615
  Receipt Date: 20061219
  Transmission Date: 20071010
  Serious: No
  Sender: FDA-Public Use
  Company Number: 2007021390

PATIENT
  Age: 54 Year
  Sex: Male

DRUGS (2)
  1. ERAXIS [Suspect]
     Indication: FUNGAL INFECTION
  2. CASPOFUNGIN(CASPOFUNGIN) [Concomitant]

REACTIONS (1)
  - CHEST PAIN [None]
